FAERS Safety Report 10068319 (Version 2)
Quarter: 2014Q2

REPORT INFORMATION
  Report Type: Spontaneous
  Country: US (occurrence: US)
  Receive Date: 20140409
  Receipt Date: 20140409
  Transmission Date: 20141212
  Serious: Yes (Hospitalization, Other)
  Sender: FDA-Public Use
  Company Number: US-BAXTER-2014BAX016683

PATIENT
  Sex: Male

DRUGS (4)
  1. DIANEAL LOW CALCIUM [Suspect]
     Indication: RENAL FAILURE CHRONIC
     Route: 033
     Dates: start: 201101
  2. DIANEAL LOW CALCIUM [Suspect]
     Dosage: LAST FILL
     Route: 033
     Dates: start: 201101
  3. DIANEAL LOW CALCIUM [Suspect]
     Indication: RENAL FAILURE CHRONIC
     Route: 033
     Dates: start: 201101
  4. DIANEAL LOW CALCIUM [Suspect]
     Dosage: LAST FILL
     Route: 033
     Dates: start: 201101

REACTIONS (3)
  - Myocardial infarction [Not Recovered/Not Resolved]
  - Coronary artery occlusion [Not Recovered/Not Resolved]
  - Atrial fibrillation [Not Recovered/Not Resolved]
